FAERS Safety Report 6200074-1 (Version None)
Quarter: 2009Q2

REPORT INFORMATION
  Report Type: 
  Country: None (occurrence: None)
  Receive Date: 20090518
  Receipt Date: 20090416
  Transmission Date: 20091009
  Serious: No
  Sender: FDA-Public Use
  Company Number: WAES 0904USA02552

PATIENT
  Age: 48 Year
  Sex: Male

DRUGS (1)
  1. JANUVIA [Suspect]
     Dosage: 100 MG/ DAILY/ PO
     Route: 048

REACTIONS (1)
  - BLOOD GLUCOSE ABNORMAL [None]
